FAERS Safety Report 8000468-8 (Version None)
Quarter: 2011Q4

REPORT INFORMATION
  Report Type: 
  Country: None (occurrence: None)
  Receive Date: 20111222
  Receipt Date: 20111028
  Transmission Date: 20120403
  Serious: No
  Sender: FDA-Public Use
  Company Number: US-BRISTOL-MYERS SQUIBB COMPANY-16204562

PATIENT
  Sex: Female

DRUGS (2)
  1. LIPITOR [Suspect]
  2. PRAVACHOL [Suspect]

REACTIONS (3)
  - PAIN [None]
  - RHEUMATOID ARTHRITIS [None]
  - MYALGIA [None]
